FAERS Safety Report 6742219-0 (Version None)
Quarter: 2010Q2

REPORT INFORMATION
  Report Type: 
  Country: None (occurrence: None)
  Receive Date: 20100526
  Receipt Date: 20100518
  Transmission Date: 20101027
  Serious: Yes (Hospitalization)
  Sender: FDA-Public Use
  Company Number: FR-SANOFI-AVENTIS-2010SA028402

PATIENT
  Age: 76 Year
  Sex: Female

DRUGS (11)
  1. LANTUS [Suspect]
     Indication: INSULIN-REQUIRING TYPE 2 DIABETES MELLITUS
     Route: 058
     Dates: end: 20091030
  2. RIVOTRIL [Suspect]
     Route: 048
     Dates: end: 20091028
  3. DURAGESIC-100 [Suspect]
     Indication: BACK PAIN
     Route: 062
     Dates: start: 20090801, end: 20091023
  4. ACTISKENAN [Suspect]
     Indication: BACK PAIN
     Route: 048
     Dates: start: 20090801, end: 20091027
  5. KARDEGIC [Concomitant]
     Indication: DRUG USE FOR UNKNOWN INDICATION
     Route: 048
  6. AMITRIPTYLINE HCL [Concomitant]
     Route: 048
  7. FORLAX [Concomitant]
     Indication: CONSTIPATION
     Route: 048
     Dates: start: 20090601
  8. MEDIATENSYL [Concomitant]
     Route: 048
  9. LOXEN [Concomitant]
     Route: 048
  10. ALDALIX [Concomitant]
     Route: 048
     Dates: end: 20091029
  11. METFORMIN HYDROCHLORIDE [Concomitant]
     Indication: INSULIN-REQUIRING TYPE 2 DIABETES MELLITUS
     Route: 048
     Dates: end: 20091029

REACTIONS (1)
  - SOMNOLENCE [None]
